FAERS Safety Report 20209158 (Version 1)
Quarter: 2021Q4

REPORT INFORMATION
  Report Type: Spontaneous
  Country: IL (occurrence: IL)
  Receive Date: 20211220
  Receipt Date: 20211220
  Transmission Date: 20220303
  Serious: No
  Sender: FDA-Public Use
  Company Number: IL-PFIZER INC-2020379323

PATIENT
  Sex: Male

DRUGS (1)
  1. GENOTROPIN [Suspect]
     Active Substance: SOMATROPIN
     Dosage: 5.3 MG
     Route: 058

REACTIONS (2)
  - Drug dose omission by device [Unknown]
  - Device defective [Unknown]
